FAERS Safety Report 7569253-5 (Version None)
Quarter: 2011Q2

REPORT INFORMATION
  Report Type: 
  Country: None (occurrence: None)
  Receive Date: 20110623
  Receipt Date: 20110620
  Transmission Date: 20111010
  Serious: Yes (Other)
  Sender: FDA-Public Use
  Company Number: PHHY2011ES50749

PATIENT
  Sex: Female

DRUGS (2)
  1. EXJADE [Suspect]
  2. CHEMOTHERAPEUTICS NOS [Concomitant]

REACTIONS (1)
  - MACROCYTOSIS [None]
